FAERS Safety Report 4285639-9 (Version None)
Quarter: 2004Q1

REPORT INFORMATION
  Report Type: 
  Country: None (occurrence: None)
  Receive Date: 20040203
  Receipt Date: 20040122
  Transmission Date: 20041129
  Serious: No
  Sender: FDA-Public Use
  Company Number: 04H-163-0248576-00

PATIENT
  Age: 66 Year
  Sex: Female

DRUGS (4)
  1. VANCOMYCIN HYDROCHLORIDE [Suspect]
     Indication: OSTEOMYELITIS
     Dosage: 1 GM, EVERY DAY, INTRAVENOUS
     Route: 042
     Dates: start: 20031126, end: 20031216
  2. MOXIFLOXACIN HCL [Suspect]
     Indication: OSTEOMYELITIS
     Dosage: 400 MG EVERY DAY, PER ORAL
     Route: 048
     Dates: start: 20031202, end: 20031216
  3. CEFTRIAXONE SODIUM [Concomitant]
  4. INSULIN [Concomitant]

REACTIONS (3)
  - BLOOD GLUCOSE FLUCTUATION [None]
  - STEVENS-JOHNSON SYNDROME [None]
  - TREMOR [None]
